FAERS Safety Report 5040200-3 (Version None)
Quarter: 2006Q2

REPORT INFORMATION
  Report Type: 
  Country: None (occurrence: None)
  Receive Date: 20060630
  Receipt Date: 20060619
  Transmission Date: 20061013
  Serious: Yes (Hospitalization)
  Sender: FDA-Public Use
  Company Number: IL-MERCK-0606ISR00018

PATIENT
  Age: 71 Year
  Sex: Male

DRUGS (1)
  1. INVANZ [Suspect]
     Indication: ESCHERICHIA INFECTION
     Route: 065

REACTIONS (2)
  - CONVULSION [None]
  - LOSS OF CONSCIOUSNESS [None]
